FAERS Safety Report 6098154-7 (Version None)
Quarter: 2009Q1

REPORT INFORMATION
  Report Type: 
  Country: None (occurrence: None)
  Receive Date: 20090227
  Receipt Date: 20090223
  Transmission Date: 20090719
  Serious: Yes (Death, Other)
  Sender: FDA-Public Use
  Company Number: BW-B.I. PHARMACEUTICALS,INC./RIDGEFIELD-2009-BP-01733BP

PATIENT
  Sex: Female

DRUGS (2)
  1. VIRAMUNE [Suspect]
  2. ISONIAZID [Suspect]
     Indication: ANTIBIOTIC PROPHYLAXIS

REACTIONS (1)
  - HEPATOTOXICITY [None]
